FAERS Safety Report 18553163 (Version 1)
Quarter: 2020Q4

REPORT INFORMATION
  Report Type: Report from Study
  Country: US (occurrence: US)
  Receive Date: 20201127
  Receipt Date: 20201127
  Transmission Date: 20210114
  Serious: Yes (Other)
  Sender: FDA-Public Use
  Company Number: US-ASTELLAS-2019US024514

PATIENT
  Sex: Male

DRUGS (1)
  1. ENZALUTAMIDE [Suspect]
     Active Substance: ENZALUTAMIDE
     Indication: PROSTATE CANCER
     Route: 048
     Dates: start: 20190212

REACTIONS (6)
  - Myalgia [Unknown]
  - Somnolence [Unknown]
  - Product supply issue [Unknown]
  - Diarrhoea haemorrhagic [Unknown]
  - Intentional product misuse [Unknown]
  - Insomnia [Unknown]
